FAERS Safety Report 6007612-2 (Version None)
Quarter: 2008Q4

REPORT INFORMATION
  Report Type: 
  Country: None (occurrence: None)
  Receive Date: 20081217
  Receipt Date: 20080321
  Transmission Date: 20090506
  Serious: No
  Sender: FDA-Public Use
  Company Number: US-ASTRAZENECA-2008UW05756

PATIENT
  Age: 53 Year
  Sex: Male
  Weight: 82.6 kg

DRUGS (4)
  1. CRESTOR [Suspect]
     Indication: BLOOD CHOLESTEROL INCREASED
     Route: 048
     Dates: start: 20080101
  2. CRESTOR [Suspect]
     Route: 048
     Dates: start: 20080101
  3. WELLBUTRIN [Concomitant]
  4. SINGULAIR [Concomitant]

REACTIONS (1)
  - WEIGHT INCREASED [None]
